FAERS Safety Report 19981457 (Version 1)
Quarter: 2021Q4

REPORT INFORMATION
  Report Type: Spontaneous
  Country: FR (occurrence: FR)
  Receive Date: 20211021
  Receipt Date: 20211021
  Transmission Date: 20220303
  Serious: Yes (Life-Threatening, Hospitalization)
  Sender: FDA-Public Use
  Company Number: None

PATIENT
  Sex: Female
  Weight: 59 kg

DRUGS (4)
  1. ESCITALOPRAM OXALATE [Suspect]
     Active Substance: ESCITALOPRAM OXALATE
     Indication: Toxicity to various agents
     Dosage: SEROPLEX OVERDOSE:UNIT DOSE 80MG
     Route: 065
     Dates: start: 20210928, end: 20210928
  2. ZOLPIDEM [Suspect]
     Active Substance: ZOLPIDEM TARTRATE
     Indication: Toxicity to various agents
     Dosage: 140 MG
     Route: 065
     Dates: start: 20210928, end: 20210928
  3. ALPRAZOLAM [Suspect]
     Active Substance: ALPRAZOLAM
     Indication: Toxicity to various agents
     Dosage: 22.5 MG
     Route: 065
     Dates: start: 20210928, end: 20210928
  4. OXAZEPAM [Suspect]
     Active Substance: OXAZEPAM
     Indication: Toxicity to various agents
     Dosage: 300 MG
     Route: 065
     Dates: start: 20210928, end: 20210928

REACTIONS (4)
  - Oxygen saturation decreased [Recovered/Resolved]
  - Coma [Recovered/Resolved]
  - Hypotension [Recovered/Resolved]
  - Overdose [Unknown]

NARRATIVE: CASE EVENT DATE: 20210928
